FAERS Safety Report 17366079 (Version 2)
Quarter: 2020Q1

REPORT INFORMATION
  Report Type: Spontaneous
  Country: CN (occurrence: CN)
  Receive Date: 20200204
  Receipt Date: 20200213
  Transmission Date: 20200409
  Serious: Yes (Death, Life-Threatening, Hospitalization, Other)
  Sender: FDA-Public Use
  Company Number: CN-PFIZER INC-2020044385

PATIENT
  Age: 29 Year
  Sex: Male

DRUGS (10)
  1. TIGECYCLINE. [Suspect]
     Active Substance: TIGECYCLINE
     Indication: PANTOEA AGGLOMERANS INFECTION
     Dosage: UNK
     Dates: start: 201707
  2. NOREPINEPHRINE. [Suspect]
     Active Substance: NOREPINEPHRINE
     Indication: SEPTIC SHOCK
     Dosage: UNK (HIGH DOSE)
     Dates: start: 201708
  3. VASOPRESSIN. [Suspect]
     Active Substance: VASOPRESSIN
     Indication: SEPTIC SHOCK
     Dosage: UNK
     Dates: start: 201708
  4. OSELTAMIVIR PHOSPHATE. [Suspect]
     Active Substance: OSELTAMIVIR PHOSPHATE
     Indication: SEPTIC SHOCK
     Dosage: UNK
     Dates: start: 20170727
  5. CILASTATIN/IMIPENEM [Suspect]
     Active Substance: CILASTATIN SODIUM\IMIPENEM
     Indication: ACINETOBACTER INFECTION
  6. GANCICLOVIR. [Suspect]
     Active Substance: GANCICLOVIR
     Indication: SEPTIC SHOCK
     Dosage: UNK
     Dates: start: 20170727
  7. TIGECYCLINE. [Suspect]
     Active Substance: TIGECYCLINE
     Indication: ACINETOBACTER INFECTION
  8. MOXIFLOXACIN. [Suspect]
     Active Substance: MOXIFLOXACIN
     Indication: SEPTIC SHOCK
     Dosage: UNK
     Dates: start: 20170727
  9. CILASTATIN/IMIPENEM [Suspect]
     Active Substance: CILASTATIN SODIUM\IMIPENEM
     Indication: PANTOEA AGGLOMERANS INFECTION
     Dosage: UNK
     Dates: start: 201707
  10. IMIPENEM [Suspect]
     Active Substance: IMIPENEM
     Indication: SEPTIC SHOCK
     Dosage: UNK
     Dates: start: 20170727

REACTIONS (1)
  - Drug ineffective [Fatal]

NARRATIVE: CASE EVENT DATE: 20170727
